FAERS Safety Report 4405281-6 (Version None)
Quarter: 2004Q3

REPORT INFORMATION
  Report Type: 
  Country: None (occurrence: None)
  Receive Date: 20040716
  Receipt Date: 20040702
  Transmission Date: 20050211
  Serious: Yes (Other)
  Sender: FDA-Public Use
  Company Number: FABR-10670

PATIENT
  Age: 44 Year
  Sex: Male

DRUGS (1)
  1. FABRAZYME [Suspect]
     Indication: FABRY'S DISEASE
     Dosage: 1 MG/KG IV
     Route: 042
     Dates: end: 20040705

REACTIONS (2)
  - COLON CANCER [None]
  - METASTASES TO LUNG [None]
